FAERS Safety Report 24636944 (Version 2)
Quarter: 2024Q4

REPORT INFORMATION
  Report Type: Spontaneous
  Country: IN (occurrence: IN)
  Receive Date: 20241119
  Receipt Date: 20241203
  Transmission Date: 20250115
  Serious: Yes (Hospitalization, Other)
  Sender: PFIZER
  Company Number: IN-PFIZER INC-PV202200002829

PATIENT
  Age: 75 Year
  Sex: Female
  Weight: 60 kg

DRUGS (7)
  1. PALBOCICLIB [Suspect]
     Active Substance: PALBOCICLIB
     Indication: Breast cancer stage IV
     Dosage: ONCE DAILY FOR 2 WEEKS
     Route: 048
     Dates: start: 20211130
  2. PALBOCICLIB [Suspect]
     Active Substance: PALBOCICLIB
     Dosage: ONCE DAILY FOR 21 DAYS, 1 WEEK OFF
     Route: 048
     Dates: start: 20211213
  3. PALBOCICLIB [Suspect]
     Active Substance: PALBOCICLIB
     Dosage: 125 MG, 1X/DAY
     Route: 048
  4. LETROZOLE [Concomitant]
     Active Substance: LETROZOLE
     Dosage: 2.5 MG, 1X/DAY
  5. CALCIUM CARBONATE\CHOLECALCIFEROL [Concomitant]
     Active Substance: CALCIUM CARBONATE\CHOLECALCIFEROL
     Dosage: UNK, 1X/DAY
  6. NIFTY [NITROFURANTOIN] [Concomitant]
     Dosage: 100 MG, 2X/DAY
  7. CITRALKA [Concomitant]
     Dosage: 15 ML, 3X/DAY
     Route: 048

REACTIONS (13)
  - White blood cells urine positive [Recovering/Resolving]
  - Febrile neutropenia [Recovered/Resolved]
  - Type 2 diabetes mellitus [Unknown]
  - Hypertension [Unknown]
  - Back pain [Recovering/Resolving]
  - Aphthous ulcer [Unknown]
  - Dysuria [Unknown]
  - Abdominal pain [Unknown]
  - Pain [Unknown]
  - Cough [Unknown]
  - Skin mass [Unknown]
  - Arthralgia [Unknown]
  - Paraesthesia [Unknown]
